FAERS Safety Report 17066274 (Version 1)
Quarter: 2019Q4

REPORT INFORMATION
  Report Type: Spontaneous
  Country: DE (occurrence: DE)
  Receive Date: 20191122
  Receipt Date: 20191122
  Transmission Date: 20200122
  Serious: Yes (Other)
  Sender: FDA-Public Use
  Company Number: DE-MYLANLABS-2019M1112711

PATIENT
  Age: 14 Year
  Sex: Female
  Weight: 38 kg

DRUGS (4)
  1. LEVETIRACETAM. [Suspect]
     Active Substance: LEVETIRACETAM
     Dosage: 2250 MILLIGRAM, QD
     Route: 048
     Dates: start: 20160211
  2. LEVETIRACETAM. [Suspect]
     Active Substance: LEVETIRACETAM
     Indication: EPILEPSY
     Dosage: 2000 MILLIGRAM, QD (1000 MG, 2X/DAY (BID))
     Route: 048
     Dates: end: 20160210
  3. BELLA HEXAL [Concomitant]
     Active Substance: CYPROTERONE ACETATE\ETHINYL ESTRADIOL
     Indication: CONTRACEPTION
     Dosage: 2 MG, ONCE DAILY (QD)
     Route: 048
     Dates: end: 20160204
  4. OSPOLOT [Suspect]
     Active Substance: SULTHIAME
     Indication: EPILEPSY
     Dosage: 300 MILLIGRAM, QD (150 MG, 2X/DAY (BID))
     Route: 048

REACTIONS (2)
  - Epilepsy [Recovered/Resolved]
  - Maternal exposure during pregnancy [Recovered/Resolved]

NARRATIVE: CASE EVENT DATE: 201601
